FAERS Safety Report 7435630-6 (Version None)
Quarter: 2011Q2

REPORT INFORMATION
  Report Type: 
  Country: None (occurrence: None)
  Receive Date: 20110425
  Receipt Date: 20110224
  Transmission Date: 20111010
  Serious: No
  Sender: FDA-Public Use
  Company Number: US-MYLANLABS-2011S1003817

PATIENT
  Age: 61 Year
  Sex: Male

DRUGS (3)
  1. CLONIDINE [Suspect]
     Indication: MUSCLE TWITCHING
     Dosage: QW
     Route: 062
     Dates: start: 20110101
  2. OMEPRAZOLE [Concomitant]
     Route: 048
  3. CLARITIN /00917501/ [Concomitant]
     Indication: HYPERSENSITIVITY
     Route: 048

REACTIONS (3)
  - APPLICATION SITE ERYTHEMA [None]
  - APPLICATION SITE PRURITUS [None]
  - APPLICATION SITE OEDEMA [None]
